FAERS Safety Report 10278212 (Version 1)
Quarter: 2014Q3

REPORT INFORMATION
  Report Type: Report from Study
  Country: US (occurrence: US)
  Receive Date: 20140704
  Receipt Date: 20140704
  Transmission Date: 20150326
  Serious: Yes (Other)
  Sender: FDA-Public Use
  Company Number: US-ROCHE-1428836

PATIENT
  Age: 1 Year
  Sex: Female

DRUGS (3)
  1. SINGULAIR [Concomitant]
     Active Substance: MONTELUKAST SODIUM
  2. NUTROPIN [Suspect]
     Active Substance: SOMATROPIN
     Indication: TURNER^S SYNDROME
     Route: 058
     Dates: start: 201307
  3. LEVOTHYROXINE [Concomitant]
     Active Substance: LEVOTHYROXINE
     Indication: BLOOD THYROID STIMULATING HORMONE INCREASED
     Route: 048

REACTIONS (6)
  - Anxiety [Unknown]
  - Rhinorrhoea [Unknown]
  - Gastric fistula repair [Unknown]
  - Blood thyroid stimulating hormone increased [Unknown]
  - Drug dose omission [Unknown]
  - Astigmatism [Unknown]

NARRATIVE: CASE EVENT DATE: 201402
